FAERS Safety Report 9241865 (Version 4)
Quarter: 2013Q2

REPORT INFORMATION
  Report Type: Spontaneous
  Country: JP (occurrence: JP)
  Receive Date: 20130419
  Receipt Date: 20130528
  Transmission Date: 20140414
  Serious: Yes (Hospitalization)
  Sender: FDA-Public Use
  Company Number: JP-JNJFOC-20130408652

PATIENT
  Age: 67 Year
  Sex: Male

DRUGS (3)
  1. NICORETTE FRUITYMINT [Suspect]
     Indication: SMOKING CESSATION THERAPY
     Dosage: 2 MG GUM, 2-3 PIECES A DAY
     Route: 048
     Dates: start: 20121022, end: 20130411
  2. CHAMPIX (VARENICLINE TARTRATE) [Suspect]
     Indication: SMOKING CESSATION THERAPY
     Route: 048
     Dates: start: 20121022, end: 20130411
  3. CHAMPIX (VARENICLINE TARTRATE) [Suspect]
     Indication: SMOKING CESSATION THERAPY
     Route: 048
     Dates: start: 20121001

REACTIONS (8)
  - Loss of consciousness [Recovered/Resolved]
  - Status epilepticus [Recovered/Resolved]
  - Metabolic acidosis [Recovered/Resolved]
  - Renal function test [Unknown]
  - Lactic acidosis [Unknown]
  - Sleep apnoea syndrome [Unknown]
  - Hypoxic-ischaemic encephalopathy [Unknown]
  - Drug level increased [Unknown]
